FAERS Safety Report 6160860-3 (Version None)
Quarter: 2009Q2

REPORT INFORMATION
  Report Type: 
  Country: None (occurrence: None)
  Receive Date: 20090420
  Receipt Date: 20090416
  Transmission Date: 20091009
  Serious: No
  Sender: FDA-Public Use
  Company Number: US-B.I. PHARMACEUTICALS,INC./RIDGEFIELD-2009-BP-03325BP

PATIENT
  Sex: Female

DRUGS (9)
  1. SPIRIVA [Suspect]
     Indication: DYSPNOEA
     Dosage: 18MCG
     Dates: start: 20070901
  2. ALBUTEROL SULFATE [Concomitant]
  3. BREATHING MEDS [Concomitant]
  4. STOMACH MEDS [Concomitant]
  5. NERVES MEDS [Concomitant]
  6. CONJESTIVE MEDS [Concomitant]
  7. PAIN MEDS [Concomitant]
  8. CONSTIPASION MEDS [Concomitant]
  9. BP MEDS [Concomitant]

REACTIONS (8)
  - EYE PAIN [None]
  - HEADACHE [None]
  - HYPERSENSITIVITY [None]
  - LACRIMATION INCREASED [None]
  - LOCAL SWELLING [None]
  - SWELLING FACE [None]
  - VISION BLURRED [None]
  - VOMITING [None]
